FAERS Safety Report 18915276 (Version 6)
Quarter: 2021Q3

REPORT INFORMATION
  Report Type: Report from Study
  Country: US (occurrence: US)
  Receive Date: 20210219
  Receipt Date: 20210921
  Transmission Date: 20211014
  Serious: No
  Sender: FDA-Public Use
  Company Number: NVSC2021US030717

PATIENT
  Sex: Male

DRUGS (2)
  1. KESIMPTA [Suspect]
     Active Substance: OFATUMUMAB
     Route: 058
  2. KESIMPTA [Suspect]
     Active Substance: OFATUMUMAB
     Indication: RELAPSING-REMITTING MULTIPLE SCLEROSIS
     Dosage: 20 MG (SOLUTION)
     Route: 058

REACTIONS (7)
  - Inappropriate schedule of product administration [Unknown]
  - Pain [Unknown]
  - Incorrect dose administered [Unknown]
  - Gait disturbance [Unknown]
  - Malaise [Unknown]
  - Wrong technique in device usage process [Unknown]
  - Fatigue [Unknown]
